FAERS Safety Report 9452457 (Version 1)
Quarter: 2013Q3

REPORT INFORMATION
  Report Type: Spontaneous
  Country: US (occurrence: None)
  Receive Date: 20130808
  Receipt Date: 20130808
  Transmission Date: 20140515
  Serious: No
  Sender: FDA-Public Use
  Company Number: None

PATIENT
  Age: 23 Year
  Sex: Male
  Weight: 104.33 kg

DRUGS (1)
  1. RISPERDAL [Suspect]
     Indication: BIPOLAR DISORDER
     Dosage: 1 PILL, AT BEDTIME, TAKEN BY MOUTH
     Route: 048
     Dates: start: 20130606, end: 20130709

REACTIONS (5)
  - Discomfort [None]
  - Muscle disorder [None]
  - Hypoaesthesia [None]
  - Somnolence [None]
  - Insomnia [None]
